FAERS Safety Report 9391563 (Version 1)
Quarter: 2013Q3

REPORT INFORMATION
  Report Type: Spontaneous
  Country: US (occurrence: None)
  Receive Date: 20130705
  Receipt Date: 20130705
  Transmission Date: 20140515
  Serious: Yes (Other)
  Sender: FDA-Public Use
  Company Number: 2013P1010823

PATIENT
  Age: 67 Year
  Sex: Male

DRUGS (3)
  1. TOBRAMYCIN [Suspect]
     Indication: STAPHYLOCOCCAL INFECTION
     Route: 014
  2. VANCOMYCIN [Suspect]
     Indication: STAPHYLOCOCCAL INFECTION
     Route: 014
  3. HYDROMORPHONE [Concomitant]

REACTIONS (5)
  - Renal failure acute [None]
  - Renal tubular necrosis [None]
  - Post procedural complication [None]
  - Procedural hypotension [None]
  - Nephropathy toxic [None]
